FAERS Safety Report 21139979 (Version 1)
Quarter: 2022Q3

REPORT INFORMATION
  Report Type: Spontaneous
  Country: ES (occurrence: ES)
  Receive Date: 20220728
  Receipt Date: 20220728
  Transmission Date: 20221027
  Serious: Yes (Hospitalization)
  Sender: FDA-Public Use
  Company Number: None

PATIENT
  Age: 9 Year
  Sex: Female

DRUGS (8)
  1. MYCOPHENOLATE MOFETIL [Suspect]
     Active Substance: MYCOPHENOLATE MOFETIL
     Indication: Product used for unknown indication
     Dosage: MICOFENOLATO DE MOFETILO (7330LM), UNIT DOSE: 500 MG, FREQUENCY TIME : 12 HRS, DURATION : 19 DAYS
     Dates: start: 20210905, end: 20210923
  2. PIPERACILLIN AND TAZOBACTAM [Suspect]
     Active Substance: PIPERACILLIN SODIUM\TAZOBACTAM SODIUM
     Indication: Product used for unknown indication
     Dosage: UNIT DOSE : 1650 MG, FREQUENCY TIME : 6 HRS, DURATION : 24 HRS
     Dates: start: 20210823, end: 20210915
  3. GANCICLOVIR [Suspect]
     Active Substance: GANCICLOVIR
     Indication: Product used for unknown indication
     Dosage: GANCICLOVIR (2370A), 110 MG, FREQUENCY TIME : 24 HRS, DURATION : 23 DAYS
     Dates: start: 20210901, end: 20210923
  4. TEICOPLANIN [Suspect]
     Active Substance: TEICOPLANIN
     Indication: Product used for unknown indication
     Dosage: TEICOPLANINA (2474A), UNIT DOSE: 220 MG, FREQUENCY TIME : 24 HRS, DURATION : 5 DAYS
     Dates: start: 20210909, end: 20210913
  5. SPIRONOLACTONE [Concomitant]
     Active Substance: SPIRONOLACTONE
     Indication: Product used for unknown indication
     Dosage: ESPIRONOLACTONA (326A), UNIT DOSE: 50 MG, FREQUENCY TIME : 12 HRS, DURATION : 16 DAYS
     Dates: start: 20210820, end: 20210904
  6. TACROLIMUS [Concomitant]
     Active Substance: TACROLIMUS
     Indication: Product used for unknown indication
     Dosage: TACROLIMUS (2694A)
  7. OMEPRAZOLE [Concomitant]
     Active Substance: OMEPRAZOLE
     Indication: Product used for unknown indication
     Dosage: OMEPRAZOL (2141A), UNIT DOSE: 22 MG, FREQUENCY TIME : 12 HRS
     Dates: start: 20210708
  8. SULFAMETHOXAZOLE+ TRIMETHOPRIM [Concomitant]
     Indication: Product used for unknown indication
     Dosage: SULFAMETOXAZOL + TRIMETOPRIMA, UNIT DOSE: 110 MG, FREQUENCY TIME : 7 DAYS
     Dates: start: 20210908

REACTIONS (1)
  - Hepatitis cholestatic [Not Recovered/Not Resolved]

NARRATIVE: CASE EVENT DATE: 20210913
